FAERS Safety Report 9444525 (Version 1)
Quarter: 2013Q3

REPORT INFORMATION
  Report Type: Spontaneous
  Country: US (occurrence: US)
  Receive Date: 20130807
  Receipt Date: 20130807
  Transmission Date: 20140515
  Serious: No
  Sender: FDA-Public Use
  Company Number: US-PFIZER INC-2013227562

PATIENT
  Age: 63 Year
  Sex: Female

DRUGS (14)
  1. XELJANZ [Suspect]
     Indication: RHEUMATOID ARTHRITIS
     Dosage: 5 MG, 2X/DAY
     Route: 048
     Dates: start: 201305, end: 201306
  2. HUMALOG [Concomitant]
     Dosage: UNK
  3. LASIX [Concomitant]
     Dosage: UNK
  4. LOSARTAN [Concomitant]
     Dosage: UNK
  5. SYNTHROID [Concomitant]
     Dosage: UNK
  6. PROVENTIL [Concomitant]
     Dosage: UNK
  7. NASONEX [Concomitant]
     Dosage: UNK
  8. LEFLUNOMIDE [Concomitant]
     Dosage: UNK
  9. PRAVASTATIN [Concomitant]
     Dosage: UNK
  10. ASPIRIN [Concomitant]
     Dosage: UNK
  11. SYMBICORT [Concomitant]
     Dosage: UNK
  12. NEXIUM [Concomitant]
     Dosage: UNK
  13. MENTAX [Concomitant]
     Dosage: UNK
  14. METOPROLOL [Concomitant]
     Dosage: UNK

REACTIONS (1)
  - Diarrhoea [Recovered/Resolved]
